FAERS Safety Report 9298925 (Version 1)
Quarter: 2013Q2

REPORT INFORMATION
  Report Type: Spontaneous
  Country: US (occurrence: US)
  Receive Date: 20130520
  Receipt Date: 20130520
  Transmission Date: 20140414
  Serious: No
  Sender: FDA-Public Use
  Company Number: US-SANOFI-AVENTIS-2012SA076635

PATIENT
  Sex: 0

DRUGS (5)
  1. SOLOSTAR [Suspect]
  2. APIDRA SOLOSTAR [Suspect]
     Route: 058
  3. APIDRA SOLOSTAR [Suspect]
     Route: 058
  4. SOLOSTAR [Suspect]
  5. LANTUS SOLOSTAR [Suspect]
     Route: 058

REACTIONS (1)
  - Wrong drug administered [Unknown]
